FAERS Safety Report 9599145 (Version 1)
Quarter: 2013Q4

REPORT INFORMATION
  Report Type: Spontaneous
  Country: US (occurrence: US)
  Receive Date: 20131004
  Receipt Date: 20131004
  Transmission Date: 20140711
  Serious: No
  Sender: FDA-Public Use
  Company Number: US-AMGEN-USASP2013027154

PATIENT
  Age: 37 Year
  Sex: Female
  Weight: 91.61 kg

DRUGS (3)
  1. ENBREL [Suspect]
     Indication: PRODUCT USED FOR UNKNOWN INDICATION
     Dosage: 50 MG, QWK
     Route: 058
  2. ASPIRIN LOW [Concomitant]
     Dosage: 81 MG, UNK
  3. TYLENOL ARTHRITIS [Concomitant]
     Dosage: 650 MG, UNK

REACTIONS (1)
  - Headache [Unknown]
